APPROVED DRUG PRODUCT: DEPODUR
Active Ingredient: MORPHINE SULFATE
Strength: 20MG/2ML (10MG/ML)
Dosage Form/Route: INJECTABLE, LIPOSOMAL;EPIDURAL
Application: N021671 | Product #003
Applicant: PACIRA PHARMACEUTICALS INC
Approved: May 18, 2004 | RLD: No | RS: No | Type: DISCN